FAERS Safety Report 7315938-5 (Version None)
Quarter: 2011Q1

REPORT INFORMATION
  Report Type: 
  Country: None (occurrence: None)
  Receive Date: 20110225
  Receipt Date: 20110218
  Transmission Date: 20110831
  Serious: Yes (Other)
  Sender: FDA-Public Use
  Company Number: GB-TEVA-268310ISR

PATIENT
  Age: 18 Year

DRUGS (2)
  1. METHOTREXATE [Suspect]
  2. INFLIXIMAB [Suspect]
     Route: 042

REACTIONS (1)
  - DRUG SPECIFIC ANTIBODY PRESENT [None]
